FAERS Safety Report 7503560-7 (Version None)
Quarter: 2011Q2

REPORT INFORMATION
  Report Type: 
  Country: None (occurrence: None)
  Receive Date: 20110525
  Receipt Date: 20110523
  Transmission Date: 20111010
  Serious: Yes (Death, Other)
  Sender: FDA-Public Use
  Company Number: JP-BAYER-2011-044121

PATIENT
  Age: 49 Year
  Sex: Male
  Weight: 72 kg

DRUGS (11)
  1. NEXAVAR [Suspect]
     Dosage: 400 MG, QOD
     Route: 048
     Dates: start: 20090821, end: 20090826
  2. LIVACT [Concomitant]
     Dosage: DAILY DOSE 12.45 G
     Route: 048
  3. NEXAVAR [Suspect]
     Dosage: DAILY DOSE 400 MG
     Route: 048
     Dates: start: 20090827, end: 20090903
  4. NEXAVAR [Suspect]
     Dosage: DAILY DOSE 800 MG
     Route: 048
     Dates: start: 20090625, end: 20090709
  5. NEXAVAR [Suspect]
     Dosage: 400 MG, QOD
     Route: 048
     Dates: start: 20090904, end: 20091007
  6. NEXAVAR [Suspect]
     Dosage: DAILY DOSE 400 MG
     Route: 048
     Dates: start: 20090716, end: 20090810
  7. NEXAVAR [Suspect]
     Dosage: DAILY DOSE 400 MG
     Route: 048
     Dates: start: 20091008, end: 20100304
  8. NEXAVAR [Suspect]
     Indication: HEPATIC NEOPLASM MALIGNANT
     Dosage: DAILY DOSE 800 MG
     Route: 048
     Dates: start: 20090625, end: 20090709
  9. BARACLUDE [Concomitant]
     Dosage: DAILY DOSE .5 MG
     Route: 048
  10. URSO 250 [Concomitant]
     Dosage: DAILY DOSE 600 MG
     Route: 048
  11. PAXIL [Concomitant]
     Dosage: DAILY DOSE 10 MG
     Route: 048

REACTIONS (4)
  - PALMAR-PLANTAR ERYTHRODYSAESTHESIA SYNDROME [None]
  - HEPATIC NEOPLASM MALIGNANT [None]
  - HEPATIC FUNCTION ABNORMAL [None]
  - PANCREATIC ENZYMES INCREASED [None]
